FAERS Safety Report 19815900 (Version 14)
Quarter: 2023Q4

REPORT INFORMATION
  Report Type: Report from Study
  Country: CO (occurrence: CO)
  Receive Date: 20210909
  Receipt Date: 20231129
  Transmission Date: 20240110
  Serious: Yes (Hospitalization, Other)
  Sender: FDA-Public Use
  Company Number: CO-TAKEDA-CO201942846

PATIENT
  Age: 3 Year
  Sex: Male
  Weight: 23 kg

DRUGS (3)
  1. IDURSULFASE [Suspect]
     Active Substance: IDURSULFASE
     Indication: Mucopolysaccharidosis II
     Dosage: UNK
     Route: 050
     Dates: start: 20191109
  2. IDURSULFASE [Suspect]
     Active Substance: IDURSULFASE
     Dosage: 10.75 MILLIGRAM
     Route: 065
  3. IDURSULFASE [Suspect]
     Active Substance: IDURSULFASE
     Dosage: 12 MILLIGRAM, 1/WEEK
     Route: 042

REACTIONS (15)
  - Postoperative wound infection [Unknown]
  - Talipes [Unknown]
  - Febrile convulsion [Recovered/Resolved]
  - Malaise [Unknown]
  - Seizure [Recovered/Resolved]
  - Pyrexia [Unknown]
  - Weight increased [Unknown]
  - Body height increased [Unknown]
  - Influenza like illness [Not Recovered/Not Resolved]
  - Irritability [Unknown]
  - Pain [Unknown]
  - Product availability issue [Unknown]
  - Treatment noncompliance [Unknown]
  - Incorrect dose administered [Unknown]
  - Product dose omission issue [Unknown]

NARRATIVE: CASE EVENT DATE: 20191206
